FAERS Safety Report 5199648-9 (Version None)
Quarter: 2007Q1

REPORT INFORMATION
  Report Type: 
  Country: None (occurrence: None)
  Receive Date: 20070103
  Receipt Date: 20070103
  Transmission Date: 20070707
  Serious: Yes (Other)
  Sender: FDA-Public Use
  Company Number: None

PATIENT
  Age: 59 Year
  Sex: Male
  Weight: 86.9 kg

DRUGS (1)
  1. CELEBREX [Suspect]
     Dosage: ONE TIME ONLY  PO
     Route: 048
     Dates: start: 20061229, end: 20061229

REACTIONS (2)
  - PRURITUS [None]
  - RASH GENERALISED [None]
